FAERS Safety Report 8843865 (Version 3)
Quarter: 2014Q3

REPORT INFORMATION
  Report Type: Spontaneous
  Country: US (occurrence: US)
  Receive Date: 20121016
  Receipt Date: 20140903
  Transmission Date: 20150326
  Serious: Yes (Hospitalization, Other)
  Sender: FDA-Public Use
  Company Number: US-009507513-2009SP033713

PATIENT
  Sex: Female
  Weight: 81.65 kg

DRUGS (9)
  1. NUVARING [Suspect]
     Active Substance: ETHINYL ESTRADIOL\ETONOGESTREL
     Dosage: UNK
     Dates: start: 20050430
  2. NUVARING [Suspect]
     Active Substance: ETHINYL ESTRADIOL\ETONOGESTREL
     Dosage: UNK
     Dates: start: 20070730
  3. IBUPROFEN. [Concomitant]
     Active Substance: IBUPROFEN
     Indication: PRODUCT USED FOR UNKNOWN INDICATION
  4. LORTAB [Concomitant]
     Active Substance: ACETAMINOPHEN\HYDROCODONE BITARTRATE
     Indication: PRODUCT USED FOR UNKNOWN INDICATION
     Dosage: UNK UNK, PRN
  5. NUVARING [Suspect]
     Active Substance: ETHINYL ESTRADIOL\ETONOGESTREL
     Dosage: UNK
     Dates: start: 20070813
  6. LO/OVRAL [Suspect]
     Active Substance: ETHINYL ESTRADIOL\NORGESTREL
     Indication: PRODUCT USED FOR UNKNOWN INDICATION
     Dates: start: 20060411
  7. LOPRESSOR [Concomitant]
     Active Substance: METOPROLOL TARTRATE
     Indication: PRODUCT USED FOR UNKNOWN INDICATION
  8. ORTHO TRI CYCLEN [Suspect]
     Active Substance: ETHINYL ESTRADIOL\NORGESTIMATE
     Indication: CONTRACEPTION
     Dates: start: 20060118
  9. NUVARING [Suspect]
     Active Substance: ETHINYL ESTRADIOL\ETONOGESTREL
     Indication: CONTRACEPTION
     Dosage: UNK
     Route: 067
     Dates: start: 20041206, end: 2005

REACTIONS (19)
  - Hydronephrosis [Unknown]
  - Menorrhagia [Unknown]
  - Insomnia [Unknown]
  - Back pain [Unknown]
  - Vaginal haemorrhage [Unknown]
  - Nephrolithiasis [Unknown]
  - Chest pain [Unknown]
  - Chest pain [Recovered/Resolved]
  - Family stress [Unknown]
  - Pneumonia [Unknown]
  - Pulmonary embolism [Recovered/Resolved with Sequelae]
  - Deep vein thrombosis [Recovered/Resolved]
  - Pelvic pain [Unknown]
  - Congestive cardiomyopathy [Not Recovered/Not Resolved]
  - Anxiety [Recovered/Resolved]
  - Pelvic inflammatory disease [Unknown]
  - Unintended pregnancy [Unknown]
  - Major depression [Unknown]
  - Borderline personality disorder [Unknown]

NARRATIVE: CASE EVENT DATE: 200502
